FAERS Safety Report 10620156 (Version 2)
Quarter: 2014Q4

REPORT INFORMATION
  Report Type: Spontaneous
  Country: GB (occurrence: GB)
  Receive Date: 20141202
  Receipt Date: 20141216
  Transmission Date: 20150529
  Serious: Yes (Life-Threatening, Hospitalization, Other)
  Sender: FDA-Public Use
  Company Number: GB-ABBVIE-14P-167-1314287-00

PATIENT
  Age: 30 Year
  Sex: Male

DRUGS (3)
  1. DECA-DURABOLIN [Suspect]
     Active Substance: NANDROLONE DECANOATE
     Indication: MUSCLE MASS
     Route: 065
  2. TESTOSTERONE. [Suspect]
     Active Substance: TESTOSTERONE
     Indication: MUSCLE MASS
     Route: 065
  3. HUMALOG [Suspect]
     Active Substance: INSULIN LISPRO
     Indication: MUSCLE MASS
     Route: 065

REACTIONS (5)
  - Hypertension [Recovered/Resolved]
  - Post procedural haemorrhage [Recovered/Resolved]
  - Off label use [Unknown]
  - Drug abuse [Unknown]
  - Hyperglycaemia [Recovered/Resolved]
